FAERS Safety Report 8916227 (Version 3)
Quarter: 2013Q1

REPORT INFORMATION
  Report Type: Spontaneous
  Country: JP (occurrence: JP)
  Receive Date: 20121120
  Receipt Date: 20130304
  Transmission Date: 20140127
  Serious: Yes (Hospitalization)
  Sender: FDA-Public Use
  Company Number: JP-GLAXOSMITHKLINE-B0845460A

PATIENT
  Age: 85 Year
  Sex: Female
  Weight: 39 kg

DRUGS (6)
  1. VALTREX [Suspect]
     Indication: HERPES ZOSTER
     Dosage: 1000MG THREE TIMES PER DAY
     Route: 048
     Dates: start: 20121106, end: 20121109
  2. REZALTAS [Suspect]
     Indication: HYPERTENSION
     Route: 048
     Dates: end: 20121108
  3. LOXONIN [Concomitant]
     Indication: HERPES ZOSTER
     Dosage: 60MG THREE TIMES PER DAY
     Route: 048
     Dates: start: 20121106, end: 20121109
  4. METHYCOBAL [Concomitant]
     Indication: HERPES ZOSTER
     Dosage: 250MG THREE TIMES PER DAY
     Route: 048
     Dates: start: 20121106, end: 20121109
  5. SODIUM GUALENATE [Concomitant]
     Indication: HERPES ZOSTER
     Route: 065
     Dates: start: 20121106, end: 20121109
  6. NEUROTROPIN [Concomitant]
     Route: 042
     Dates: start: 20121106, end: 20121106

REACTIONS (7)
  - Dizziness [Recovered/Resolved]
  - Asthenia [Recovered/Resolved]
  - Blood pressure systolic decreased [Recovered/Resolved]
  - Hallucination [Recovered/Resolved]
  - Hallucination, visual [Recovered/Resolved]
  - Blood urea increased [Unknown]
  - Blood creatinine increased [Unknown]
